FAERS Safety Report 7443050-3 (Version None)
Quarter: 2011Q2

REPORT INFORMATION
  Report Type: 
  Country: None (occurrence: None)
  Receive Date: 20110428
  Receipt Date: 20110422
  Transmission Date: 20111010
  Serious: Yes (Hospitalization, Other)
  Sender: FDA-Public Use
  Company Number: JP-CEPHALON-2011002089

PATIENT
  Age: 56 Year
  Sex: Male

DRUGS (2)
  1. BENDAMUSTINE HCL [Suspect]
     Indication: MANTLE CELL LYMPHOMA
     Route: 042
     Dates: start: 20101227, end: 20101228
  2. BENDAMUSTINE HCL [Suspect]
     Route: 042
     Dates: start: 20110118, end: 20110119

REACTIONS (3)
  - PLEURISY [None]
  - DYSGEUSIA [None]
  - HAEMOPTYSIS [None]
